FAERS Safety Report 4318026-5 (Version None)
Quarter: 2004Q1

REPORT INFORMATION
  Report Type: 
  Country: None (occurrence: None)
  Receive Date: 20040317
  Receipt Date: 20031215
  Transmission Date: 20041129
  Serious: Yes (Death, Hospitalization, Other)
  Sender: FDA-Public Use
  Company Number: 200320486US

PATIENT
  Sex: Female
  Weight: 72.7 kg

DRUGS (25)
  1. ALLEGRA [Suspect]
     Indication: SINUS CONGESTION
     Dosage: DOSE: UNK
  2. PREDNISONE [Concomitant]
     Dosage: DOSE: UNKNOWN
  3. METHOTREXATE [Concomitant]
     Dosage: DOSE: UNKNOWN
  4. CELEBREX [Concomitant]
     Dosage: DOSE: UNKNOWN
  5. COMPAZINE [Concomitant]
     Dosage: DOSE: UNKNOWN
  6. HYDROCODONE [Concomitant]
     Dosage: DOSE: UNKNOWN
  7. CELEXA [Concomitant]
     Dosage: DOSE: UNKNOWN
  8. URISEC [Concomitant]
     Dosage: DOSE: UNKNOWN
  9. LEVAQUIN [Concomitant]
     Dosage: DOSE: UNKNOWN
  10. FOLIC ACID [Concomitant]
     Dosage: DOSE: UNKNOWN
  11. CARISOPRODOL [Concomitant]
     Dosage: DOSE: UNKNOWN
  12. SSRI [Concomitant]
     Dosage: DOSE: UNKNOWN
  13. MIRTAZAPINE [Concomitant]
     Dosage: DOSE: UNKNOWN
  14. DIFLUCAN [Concomitant]
     Dosage: DOSE: UNKNOWN
  15. COMBIVENT [Concomitant]
     Dosage: DOSE: UNKNOWN
  16. CARAFATE [Concomitant]
     Dosage: DOSE: UNKNOWN
  17. NORVASC [Concomitant]
     Dosage: DOSE: UNKNOWN
  18. DIOVAN [Concomitant]
     Dosage: DOSE: UNKNOWN
  19. TOPROL-XL [Concomitant]
     Dosage: DOSE: UNKNOWN
  20. NYSTATIN [Concomitant]
     Dosage: DOSE: UNKNOWN
  21. ZONEGRAN [Concomitant]
     Dosage: DOSE: UNKNOWN
  22. COUMADIN [Concomitant]
     Dosage: DOSE: UNKNOWN
  23. ACTONEL [Concomitant]
     Dosage: DOSE: UNKNOWN
  24. POTASSIUM [Concomitant]
     Dosage: DOSE: UNKNOWN
  25. FUROSEMIDE [Concomitant]
     Dosage: DOSE: UNKNOWN

REACTIONS (9)
  - BLOOD DISORDER [None]
  - BRONCHITIS [None]
  - HYPOTENSION [None]
  - PNEUMONIA STAPHYLOCOCCAL [None]
  - RENAL PAIN [None]
  - RESPIRATORY FAILURE [None]
  - SEPSIS [None]
  - ULCER HAEMORRHAGE [None]
  - WEIGHT DECREASED [None]
